FAERS Safety Report 5202630-6 (Version None)
Quarter: 2006Q4

REPORT INFORMATION
  Report Type: 
  Country: None (occurrence: None)
  Receive Date: 20061016
  Receipt Date: 20060809
  Transmission Date: 20070319
  Serious: No
  Sender: FDA-Public Use
  Company Number: 2006SP002964

PATIENT
  Age: 79 Year
  Sex: Male
  Weight: 93.441 kg

DRUGS (11)
  1. LUNESTA [Suspect]
     Indication: INSOMNIA
     Dosage: 2 MG; PRN; ORAL
     Route: 048
     Dates: start: 20060201
  2. DICYCLOMINE [Concomitant]
  3. CIPROFLOXACIN [Concomitant]
  4. QUININE SULFATE [Concomitant]
  5. ACIPHEX [Concomitant]
  6. GARLIC [Concomitant]
  7. VITAMIN CAP [Concomitant]
  8. TERAZOSIN HCL [Concomitant]
  9. DILTIAZEM HCL [Concomitant]
  10. ATORVASTATIN CALCIUM [Concomitant]
  11. DESLORATIDINE [Concomitant]

REACTIONS (2)
  - DYSGEUSIA [None]
  - INITIAL INSOMNIA [None]
